FAERS Safety Report 4806763-5 (Version None)
Quarter: 2005Q4

REPORT INFORMATION
  Report Type: 
  Country: None (occurrence: None)
  Receive Date: 20051021
  Receipt Date: 20051013
  Transmission Date: 20060501
  Serious: Yes (Other)
  Sender: FDA-Public Use
  Company Number: 200517998US

PATIENT
  Sex: Female
  Weight: 68.2 kg

DRUGS (9)
  1. LANTUS [Suspect]
     Indication: DIABETES MELLITUS NON-INSULIN-DEPENDENT
     Dosage: DOSE: 40-20; DOSE UNIT: UNITS
     Route: 051
  2. PROPRANOLOL [Concomitant]
  3. LISINOPRIL W/HYDROCHLOROTHIAZIDE [Concomitant]
  4. POTASSIUM [Concomitant]
  5. FUROSEMIDE [Concomitant]
  6. ICAPS [Concomitant]
     Dosage: DOSE: UNKNOWN
  7. DIGOXIN [Concomitant]
  8. ALLOPURINOL [Concomitant]
     Indication: GOUT
  9. METFORMIN [Concomitant]

REACTIONS (5)
  - ANOREXIA [None]
  - BLOOD GLUCOSE INCREASED [None]
  - COLONIC POLYP [None]
  - THYROID DISORDER [None]
  - WEIGHT DECREASED [None]
